FAERS Safety Report 10020720 (Version 1)
Quarter: 2014Q1

REPORT INFORMATION
  Report Type: Spontaneous
  Country: US (occurrence: US)
  Receive Date: 20140319
  Receipt Date: 20140319
  Transmission Date: 20141002
  Serious: Yes (Other)
  Sender: FDA-Public Use
  Company Number: US-AMGEN-USASP2014017996

PATIENT
  Age: 72 Year
  Sex: Female

DRUGS (8)
  1. PROLIA [Suspect]
     Indication: OSTEOPOROSIS POSTMENOPAUSAL
     Dosage: UNK UNK, Q6MO
     Route: 065
     Dates: start: 20131004
  2. MONTELUKAST [Concomitant]
     Indication: HYPERSENSITIVITY
     Dosage: 10 MG, UNK
  3. LEVOTHYROXINE [Concomitant]
     Indication: THYROID DISORDER
     Dosage: 50 MG, UNK
  4. POTASSIUM [Concomitant]
     Dosage: 10 MEQ, QD
  5. DOXAZOSIN [Concomitant]
     Dosage: 08 MG, 12 TIMES PER DAY
  6. BISOPROLOL FUMARATE [Concomitant]
     Dosage: 5 MG, UNK
  7. EXFORGE [Concomitant]
     Indication: HYPERTENSION
     Dosage: 10/320 MG
  8. BABY ASPIRIN [Concomitant]

REACTIONS (10)
  - Heart rate decreased [Unknown]
  - Diverticulitis [Unknown]
  - Panic attack [Unknown]
  - Nausea [Unknown]
  - Pain in jaw [Unknown]
  - Feeling abnormal [Unknown]
  - Insomnia [Unknown]
  - Abdominal pain upper [Unknown]
  - Upper respiratory tract infection [Unknown]
  - Pain in extremity [Unknown]
